FAERS Safety Report 6349754-8 (Version None)
Quarter: 2009Q3

REPORT INFORMATION
  Report Type: 
  Country: None (occurrence: None)
  Receive Date: 20090911
  Receipt Date: 20090908
  Transmission Date: 20100115
  Serious: Yes (Death, Hospitalization)
  Sender: FDA-Public Use
  Company Number: PHHO2009DE07814

PATIENT
  Sex: Male
  Weight: 58 kg

DRUGS (3)
  1. RAD 666 RAD+TAB+PTR [Suspect]
     Indication: LUNG TRANSPLANT
     Dosage: 0.5 MG/DAY
     Route: 048
     Dates: start: 20090525, end: 20090618
  2. SANDIMMUNE [Suspect]
  3. DECORTIN-H [Suspect]

REACTIONS (6)
  - ARTERIAL RUPTURE [None]
  - CORONARY ARTERY DISEASE [None]
  - MYOCARDIAL INFARCTION [None]
  - RENAL IMPAIRMENT [None]
  - RENAL TUBULAR DISORDER [None]
  - THROMBOTIC MICROANGIOPATHY [None]
